FAERS Safety Report 21404129 (Version 1)
Quarter: 2022Q4

REPORT INFORMATION
  Report Type: Spontaneous
  Country: US (occurrence: US)
  Receive Date: 20221003
  Receipt Date: 20221003
  Transmission Date: 20230112
  Serious: Yes (Other)
  Sender: FDA-Public Use
  Company Number: US-JNJFOC-20220958142

PATIENT

DRUGS (1)
  1. ACETAMINOPHEN [Suspect]
     Active Substance: ACETAMINOPHEN
     Indication: Product used for unknown indication
     Dosage: 2X500MG TABLETS EVERY 4 H FOR 4 DOSES EACH DAY
     Route: 048

REACTIONS (2)
  - Drug-induced liver injury [Unknown]
  - Overdose [Unknown]
